FAERS Safety Report 19033939 (Version 2)
Quarter: 2021Q1

REPORT INFORMATION
  Report Type: Report from Study
  Country: IT (occurrence: IT)
  Receive Date: 20210319
  Receipt Date: 20210326
  Transmission Date: 20210420
  Serious: Yes (Life-Threatening)
  Sender: FDA-Public Use
  Company Number: IT-PFIZER INC-2021272379

PATIENT
  Age: 14 Year
  Sex: Female
  Weight: 42 kg

DRUGS (3)
  1. ALPRAZOLAM. [Suspect]
     Active Substance: ALPRAZOLAM
     Dosage: 18 ML, TOTAL
     Route: 048
     Dates: start: 20210304, end: 20210304
  2. AMISULPRIDE [Suspect]
     Active Substance: AMISULPRIDE
     Dosage: 450 MG, TOTAL
     Route: 048
     Dates: start: 20210304, end: 20210304
  3. FLUOXETINE [Suspect]
     Active Substance: FLUOXETINE HYDROCHLORIDE
     Dosage: 80 MG, TOTAL
     Route: 048
     Dates: start: 20210304, end: 20210304

REACTIONS (9)
  - Vomiting [Recovering/Resolving]
  - Hyporeflexia [Recovering/Resolving]
  - Drug abuse [Recovering/Resolving]
  - Mydriasis [Recovering/Resolving]
  - Electrocardiogram QT prolonged [Recovering/Resolving]
  - Cough [Recovering/Resolving]
  - Intentional overdose [Unknown]
  - Suicide attempt [Unknown]
  - Sopor [Recovering/Resolving]

NARRATIVE: CASE EVENT DATE: 20210304
